FAERS Safety Report 5295254-6 (Version None)
Quarter: 2007Q2

REPORT INFORMATION
  Report Type: 
  Country: None (occurrence: None)
  Receive Date: 20070412
  Receipt Date: 20070405
  Transmission Date: 20071010
  Serious: Yes (Death, Other)
  Sender: FDA-Public Use
  Company Number: US-PFIZER INC-2006133685

PATIENT
  Sex: Male

DRUGS (2)
  1. CELEBREX [Suspect]
     Indication: ARTHRITIS
     Dates: start: 19990429, end: 19991230
  2. VIOXX [Suspect]
     Dates: start: 19991215, end: 19991231

REACTIONS (1)
  - MYOCARDIAL INFARCTION [None]
